FAERS Safety Report 4561005-3 (Version None)
Quarter: 2005Q1

REPORT INFORMATION
  Report Type: 
  Country: None (occurrence: None)
  Receive Date: 20050126
  Receipt Date: 20040629
  Transmission Date: 20050727
  Serious: No
  Sender: FDA-Public Use
  Company Number: US-BRISTOL-MYERS SQUIBB COMPANY-12627832

PATIENT
  Age: 71 Year
  Sex: Male
  Weight: 106 kg

DRUGS (5)
  1. GLUCOPHAGE [Suspect]
     Indication: DIABETES MELLITUS
  2. AVANDIA [Concomitant]
  3. LIPITOR [Concomitant]
  4. VASOTEC [Concomitant]
  5. LASIX [Concomitant]

REACTIONS (1)
  - BLOOD GLUCOSE INCREASED [None]
